FAERS Safety Report 10152091 (Version 2)
Quarter: 2014Q3

REPORT INFORMATION
  Report Type: Spontaneous
  Country: US (occurrence: US)
  Receive Date: 20140505
  Receipt Date: 20140730
  Transmission Date: 20150326
  Serious: No
  Sender: FDA-Public Use
  Company Number: US-BRISTOL-MYERS SQUIBB COMPANY-20558870

PATIENT
  Age: 58 Year
  Sex: Male

DRUGS (16)
  1. CARDIZEM [Concomitant]
     Active Substance: DILTIAZEM HYDROCHLORIDE
  2. PRAVASTATIN SODIUM. [Concomitant]
     Active Substance: PRAVASTATIN SODIUM
  3. DULERA [Concomitant]
     Active Substance: FORMOTEROL FUMARATE DIHYDRATE\MOMETASONE FUROATE
  4. FARXIGA [Suspect]
     Active Substance: DAPAGLIFLOZIN PROPANEDIOL
     Indication: DIABETES MELLITUS
     Route: 048
     Dates: start: 20140219, end: 20140301
  5. METOPROLOL [Concomitant]
     Active Substance: METOPROLOL
  6. BUMETANIDE. [Concomitant]
     Active Substance: BUMETANIDE
  7. ADVAIR HFA [Concomitant]
     Active Substance: FLUTICASONE PROPIONATE\SALMETEROL XINAFOATE
     Dosage: 1DF: 250/50 UNITS NOS
  8. BYDUREON [Concomitant]
     Active Substance: EXENATIDE
  9. VITAMIN D2 [Concomitant]
     Active Substance: ERGOCALCIFEROL
     Dosage: 1DF: 50000 UNITS
  10. CYMBALTA [Concomitant]
     Active Substance: DULOXETINE HYDROCHLORIDE
  11. LANTUS [Concomitant]
     Active Substance: INSULIN GLARGINE
  12. KLONOPIN [Concomitant]
     Active Substance: CLONAZEPAM
  13. ZYLOPRIM [Concomitant]
     Active Substance: ALLOPURINOL
  14. NIZORAL CREAM [Concomitant]
  15. ULTRAM [Concomitant]
     Active Substance: TRAMADOL HYDROCHLORIDE
  16. PLAVIX [Concomitant]
     Active Substance: CLOPIDOGREL BISULFATE

REACTIONS (1)
  - Rash generalised [Unknown]

NARRATIVE: CASE EVENT DATE: 2014
